FAERS Safety Report 12220224 (Version 3)
Quarter: 2016Q2

REPORT INFORMATION
  Report Type: Spontaneous
  Country: US (occurrence: US)
  Receive Date: 20160330
  Receipt Date: 20160610
  Transmission Date: 20160815
  Serious: No
  Sender: FDA-Public Use
  Company Number: US-BAYER-2016-055279

PATIENT
  Age: 86 Year
  Sex: Male
  Weight: 61.22 kg

DRUGS (3)
  1. MIRALAX [Suspect]
     Active Substance: POLYETHYLENE GLYCOL 3350
     Indication: CONSTIPATION
     Dosage: ABOUT A THIRD OF SACHET OR SOMETIMES LESS, QD
     Route: 048
     Dates: start: 201603
  2. METAMUCIL [Concomitant]
     Active Substance: PLANTAGO SEED
     Dosage: UNK
  3. QUININE [Concomitant]
     Active Substance: QUININE
     Dosage: UNK

REACTIONS (3)
  - Underdose [None]
  - Product use issue [None]
  - Product use issue [None]

NARRATIVE: CASE EVENT DATE: 2016
